FAERS Safety Report 15508589 (Version 1)
Quarter: 2018Q4

REPORT INFORMATION
  Report Type: Report from Study
  Country: JP (occurrence: JP)
  Receive Date: 20181016
  Receipt Date: 20181016
  Transmission Date: 20190205
  Serious: Yes (Death)
  Sender: FDA-Public Use
  Company Number: JP-ACTELION-A-US2018-180358

PATIENT
  Age: 39 Year
  Sex: Female

DRUGS (5)
  1. TADALAFIL. [Suspect]
     Active Substance: TADALAFIL
     Indication: PRODUCT USED FOR UNKNOWN INDICATION
     Route: 065
  2. CAMEDON [Concomitant]
  3. VENTAVIS [Suspect]
     Active Substance: ILOPROST
     Indication: PULMONARY ARTERIAL HYPERTENSION
     Dosage: 5 U, TID
     Route: 055
     Dates: start: 20180928
  4. VENTAVIS [Suspect]
     Active Substance: ILOPROST
     Dosage: 5 U, QID
     Route: 055
     Dates: start: 20180523
  5. OPSUMIT [Suspect]
     Active Substance: MACITENTAN
     Indication: PULMONARY ARTERIAL HYPERTENSION
     Route: 048

REACTIONS (4)
  - Dizziness [Recovered/Resolved]
  - Death [Fatal]
  - Nasopharyngitis [Unknown]
  - Erythema [Unknown]

NARRATIVE: CASE EVENT DATE: 20180523
